FAERS Safety Report 15779465 (Version 1)
Quarter: 2019Q1

REPORT INFORMATION
  Report Type: Report from Study
  Country: None (occurrence: CO)
  Receive Date: 20190101
  Receipt Date: 20190101
  Transmission Date: 20190417
  Serious: Yes (Death)
  Sender: FDA-Public Use
  Company Number: CO-ABBVIE-18K-036-2608652-00

PATIENT
  Age: 64 Year
  Sex: Male
  Weight: 70 kg

DRUGS (1)
  1. HUMIRA [Suspect]
     Active Substance: ADALIMUMAB
     Indication: ANKYLOSING SPONDYLITIS
     Dosage: HUMIRA AC
     Route: 058
     Dates: start: 20081119, end: 20181108

REACTIONS (4)
  - Chest pain [Fatal]
  - Cardio-respiratory arrest [Fatal]
  - Cardiac arrest [Fatal]
  - Dyspnoea [Fatal]

NARRATIVE: CASE EVENT DATE: 20181129
